FAERS Safety Report 9281897 (Version 1)
Quarter: 2013Q2

REPORT INFORMATION
  Report Type: Spontaneous
  Country: GR (occurrence: GR)
  Receive Date: 20130510
  Receipt Date: 20130510
  Transmission Date: 20140414
  Serious: Yes (Other)
  Sender: FDA-Public Use
  Company Number: GR-BIOGENIDEC-2013BI039599

PATIENT
  Age: 45 Year
  Sex: Female

DRUGS (1)
  1. TYSABRI [Suspect]
     Indication: RELAPSING-REMITTING MULTIPLE SCLEROSIS
     Route: 042
     Dates: start: 201009, end: 201303

REACTIONS (5)
  - Gait disturbance [Unknown]
  - Asthenia [Unknown]
  - Bladder dysfunction [Unknown]
  - Incontinence [Unknown]
  - Dysarthria [Unknown]
